FAERS Safety Report 9570640 (Version 2)
Quarter: 2013Q4

REPORT INFORMATION
  Report Type: Spontaneous
  Country: US (occurrence: US)
  Receive Date: 20131001
  Receipt Date: 20131025
  Transmission Date: 20140711
  Serious: Yes (Disabling, Other)
  Sender: FDA-Public Use
  Company Number: US-009507513-1309USA001516

PATIENT
  Age: 46 Year
  Sex: Female
  Weight: 73.4 kg

DRUGS (2)
  1. TEMODAR [Suspect]
     Indication: GLIOBLASTOMA MULTIFORME
     Dosage: CYCLE 3 (ALSO REPORTED AS 200MG/M2) 360 MG
     Route: 048
     Dates: start: 20130402
  2. TEMODAR [Suspect]
     Indication: BRAIN NEOPLASM

REACTIONS (7)
  - Toothache [Recovered/Resolved]
  - Ear pain [Recovered/Resolved]
  - Hypoaesthesia [Recovered/Resolved]
  - Fatigue [Recovered/Resolved]
  - Paraesthesia [Recovered/Resolved]
  - Hypoaesthesia [Recovered/Resolved]
  - Pain [Recovering/Resolving]
